FAERS Safety Report 6471194-1 (Version None)
Quarter: 2009Q4

REPORT INFORMATION
  Report Type: 
  Country: None (occurrence: None)
  Receive Date: 20091203
  Receipt Date: 20080314
  Transmission Date: 20100525
  Serious: Yes (Hospitalization, Other)
  Sender: FDA-Public Use
  Company Number: US-ELI_LILLY_AND_COMPANY-US200802003417

PATIENT
  Age: 69 Year
  Sex: Female

DRUGS (4)
  1. GEMZAR [Suspect]
     Indication: PANCREATIC CARCINOMA
     Dosage: 1940 MG, OTHER
     Route: 042
     Dates: start: 20070424, end: 20070828
  2. CARBOPLATIN [Concomitant]
     Indication: PANCREATIC CARCINOMA
     Dates: start: 20070424, end: 20070424
  3. HYDROCHLOROTHIAZIDE [Concomitant]
     Indication: HYPERTENSION
  4. ANTIBIOTICS [Concomitant]
     Indication: LUNG INFILTRATION
     Route: 042
     Dates: start: 20070901, end: 20070901

REACTIONS (2)
  - PLEURAL EFFUSION [None]
  - PULMONARY TOXICITY [None]
